FAERS Safety Report 6889141-7 (Version None)
Quarter: 2010Q3

REPORT INFORMATION
  Report Type: 
  Country: None (occurrence: None)
  Receive Date: 20100730
  Receipt Date: 20080102
  Transmission Date: 20110219
  Serious: No
  Sender: FDA-Public Use
  Company Number: US-PFIZER INC-2007098835

PATIENT
  Sex: Female
  Weight: 68.2 kg

DRUGS (5)
  1. LIPITOR [Suspect]
     Indication: BLOOD CHOLESTEROL INCREASED
     Route: 048
     Dates: start: 20071017, end: 20071024
  2. FLONASE [Concomitant]
     Indication: ASTHMA
  3. ZYRTEC [Concomitant]
     Indication: ASTHMA
  4. MONTELUKAST SODIUM [Concomitant]
     Indication: ASTHMA
  5. ADVAIR DISKUS 100/50 [Concomitant]
     Indication: ASTHMA

REACTIONS (1)
  - SCLERODERMA [None]
